FAERS Safety Report 14730539 (Version 3)
Quarter: 2018Q2

REPORT INFORMATION
  Report Type: Report from Study
  Country: None (occurrence: ES)
  Receive Date: 20180406
  Receipt Date: 20180524
  Transmission Date: 20180711
  Serious: Yes (Death, Other)
  Sender: FDA-Public Use
  Company Number: ES-BAUSCH-BL-2018-008488

PATIENT
  Age: 23 Year
  Sex: Male

DRUGS (20)
  1. GENOXAL [Suspect]
     Active Substance: CYCLOPHOSPHAMIDE
     Indication: ACUTE LYMPHOCYTIC LEUKAEMIA RECURRENT
     Dosage: REGIMEN 1, FIRST CYCLE ; CYCLICAL
     Route: 065
     Dates: start: 20140415
  2. GENOXAL [Suspect]
     Active Substance: CYCLOPHOSPHAMIDE
     Dosage: SECOND CYCLE ; CYCLICAL
     Route: 065
     Dates: start: 2014
  3. THIOTEPA. [Suspect]
     Active Substance: THIOTEPA
     Indication: ACUTE LYMPHOCYTIC LEUKAEMIA RECURRENT
     Dosage: (4 CYCLES) REGIMEN 1, ; CYCLICAL
     Route: 065
     Dates: start: 20140928
  4. DOXORUBICIN HCL [Suspect]
     Active Substance: DOXORUBICIN HYDROCHLORIDE
     Indication: ACUTE LYMPHOCYTIC LEUKAEMIA RECURRENT
     Dosage: REGIMEN 1, FIRST CYCLE ; CYCLICAL
     Route: 065
     Dates: start: 20140415
  5. BUSULPHAN [Suspect]
     Active Substance: BUSULFAN
     Indication: ACUTE LYMPHOCYTIC LEUKAEMIA RECURRENT
     Dosage: REGIMEN 1 ; CYCLICAL
     Route: 065
     Dates: start: 20140928
  6. RITUXIMAB. [Suspect]
     Active Substance: RITUXIMAB
     Indication: PRODUCT USED FOR UNKNOWN INDICATION
     Dosage: REGIMEN 1, FIRST CYCLE () ; CYCLICAL
     Route: 065
  7. CYTARABINE. [Suspect]
     Active Substance: CYTARABINE
     Indication: ACUTE LYMPHOCYTIC LEUKAEMIA RECURRENT
     Dosage: REGIMEN 1, FIRST CYCLE; CYCLICAL
     Route: 065
     Dates: start: 20140415
  8. PONATINIB [Suspect]
     Active Substance: PONATINIB
     Indication: PRODUCT USED FOR UNKNOWN INDICATION
     Dosage: AFTER HEMATOPOIETIC STEM CELL TRANSPLANTATION
     Route: 065
  9. DEXAMETHASONE. [Suspect]
     Active Substance: DEXAMETHASONE
     Indication: ACUTE LYMPHOCYTIC LEUKAEMIA RECURRENT
     Dosage: REGIMEN 1, FIRST CYCLE ; CYCLICAL
     Route: 065
     Dates: start: 20140415
  10. ICLUSIG [Suspect]
     Active Substance: PONATINIB
     Indication: ACUTE LYMPHOCYTIC LEUKAEMIA RECURRENT
     Dosage: 45 MG, QD REGIMEN 1, FIRST CYCLE
     Route: 048
     Dates: start: 20140415
  11. METHOTREXATE SODIUM. [Suspect]
     Active Substance: METHOTREXATE SODIUM
     Dosage: SECOND CYCLE ; CYCLICAL
     Route: 065
     Dates: start: 2014
  12. DEXAMETHASONE. [Suspect]
     Active Substance: DEXAMETHASONE
     Dosage: SECOND CYCLE; CYCLICAL
     Route: 065
     Dates: start: 2014
  13. VINCRISTINE SULFATE. [Suspect]
     Active Substance: VINCRISTINE SULFATE
     Dosage: SECOND CYCLE; CYCLICAL
     Route: 065
     Dates: start: 2014
  14. CYTARABINE. [Suspect]
     Active Substance: CYTARABINE
     Dosage: SECOND CYCLE ; CYCLICAL
     Route: 065
     Dates: start: 2014
  15. DOXORUBICIN HCL [Suspect]
     Active Substance: DOXORUBICIN HYDROCHLORIDE
     Dosage: SECOND CYCLE ; CYCLICAL
     Route: 065
     Dates: start: 2014
  16. ICLUSIG [Suspect]
     Active Substance: PONATINIB
     Route: 065
     Dates: start: 2014
  17. METHOTREXATE SODIUM. [Suspect]
     Active Substance: METHOTREXATE SODIUM
     Indication: ACUTE LYMPHOCYTIC LEUKAEMIA RECURRENT
     Dosage: REGIMEN 1, FIRST CYCLE ; CYCLICAL
     Route: 065
     Dates: start: 20140415
  18. PONATINIB [Suspect]
     Active Substance: PONATINIB
     Dosage: SECOND CYCLE
     Route: 065
  19. VINCRISTINE SULFATE. [Suspect]
     Active Substance: VINCRISTINE SULFATE
     Indication: ACUTE LYMPHOCYTIC LEUKAEMIA RECURRENT
     Dosage: REGIMEN 1, FIRST CYCLE ; CYCLICAL
     Route: 065
     Dates: start: 20140415
  20. FLUDARABINE [Suspect]
     Active Substance: FLUDARABINE PHOSPHATE
     Indication: ACUTE LYMPHOCYTIC LEUKAEMIA RECURRENT
     Dosage: REGIMEN 1 ; CYCLICAL
     Route: 065
     Dates: start: 20140928

REACTIONS (6)
  - Post transplant lymphoproliferative disorder [Recovered/Resolved]
  - Cytomegalovirus infection [Unknown]
  - Viral haemorrhagic cystitis [Unknown]
  - Epstein-Barr virus infection [Recovered/Resolved]
  - Acute lymphocytic leukaemia recurrent [Unknown]
  - Autoimmune lymphoproliferative syndrome [Unknown]

NARRATIVE: CASE EVENT DATE: 20141015
